FAERS Safety Report 10200320 (Version 4)
Quarter: 2014Q3

REPORT INFORMATION
  Report Type: Report from Study
  Country: CA (occurrence: CA)
  Receive Date: 20140527
  Receipt Date: 20140717
  Transmission Date: 20150326
  Serious: Yes (Other)
  Sender: FDA-Public Use
  Company Number: PHHY2014CA012929

PATIENT
  Sex: Female

DRUGS (1)
  1. SANDOSTATIN LAR DEPOT [Suspect]
     Active Substance: OCTREOTIDE ACETATE
     Indication: NEUROENDOCRINE CARCINOMA METASTATIC
     Dosage: 30 MG, EVERY FOUR WEEKS
     Route: 030
     Dates: start: 20121203

REACTIONS (6)
  - General physical health deterioration [Unknown]
  - Malignant neoplasm progression [Unknown]
  - Nausea [Unknown]
  - Blood pressure increased [Unknown]
  - Localised infection [Unknown]
  - Weight decreased [Unknown]
